FAERS Safety Report 6435860-6 (Version None)
Quarter: 2009Q4

REPORT INFORMATION
  Report Type: 
  Country: None (occurrence: None)
  Receive Date: 20091111
  Receipt Date: 20091029
  Transmission Date: 20100525
  Serious: Yes (Life-Threatening)
  Sender: FDA-Public Use
  Company Number: GB-ELI_LILLY_AND_COMPANY-GB200910007423

PATIENT
  Age: 80 Year
  Sex: Female

DRUGS (11)
  1. ZYPREXA [Suspect]
     Indication: DEPRESSION
     Dosage: 2.5 MG, UNKNOWN
     Route: 048
     Dates: start: 20090930, end: 20091022
  2. ASPIRIN [Concomitant]
     Dosage: UNK, UNKNOWN
     Route: 065
  3. ATORVASTATIN [Concomitant]
     Dosage: UNK, UNKNOWN
     Route: 065
  4. ESOMEPRAZOLE MAGNESIUM [Concomitant]
     Dosage: UNK, UNKNOWN
     Route: 065
  5. ISOSORBIDE MONONITRATE [Concomitant]
     Dosage: UNK, UNKNOWN
     Route: 065
  6. LEVOTHYROXINE SODIUM [Concomitant]
     Dosage: UNK, UNKNOWN
     Route: 065
  7. NULYTELY [Concomitant]
     Dosage: UNK, UNKNOWN
     Route: 065
  8. NICORANDIL [Concomitant]
     Dosage: UNK, UNKNOWN
     Route: 065
  9. TILDIEM LA [Concomitant]
     Dosage: UNK, UNKNOWN
     Route: 065
  10. ZAMADOL [Concomitant]
     Dosage: UNK, UNKNOWN
     Route: 065
  11. ZOPICLONE [Concomitant]
     Dosage: UNK, UNKNOWN
     Route: 065

REACTIONS (2)
  - ACUTE MYOCARDIAL INFARCTION [None]
  - OFF LABEL USE [None]
